FAERS Safety Report 6893052-0 (Version None)
Quarter: 2010Q3

REPORT INFORMATION
  Report Type: 
  Country: None (occurrence: None)
  Receive Date: 20100731
  Receipt Date: 20090315
  Transmission Date: 20110219
  Serious: No
  Sender: FDA-Public Use
  Company Number: US-PFIZER INC-2008155088

PATIENT
  Sex: Female
  Weight: 77.098 kg

DRUGS (7)
  1. GABAPENTIN [Suspect]
     Indication: NEUROPATHY PERIPHERAL
     Dates: start: 20081201
  2. LEVOXYL [Concomitant]
     Dosage: UNK
  3. CITALOPRAM [Concomitant]
     Dosage: UNK
  4. COLESTID [Concomitant]
     Dosage: UNK
  5. DIOVAN HCT [Concomitant]
     Dosage: UNK
  6. ZETIA [Concomitant]
     Dosage: UNK
  7. GABAPENTIN [Concomitant]

REACTIONS (1)
  - PAIN IN EXTREMITY [None]
